FAERS Safety Report 21517296 (Version 2)
Quarter: 2023Q4

REPORT INFORMATION
  Report Type: Report from Study
  Country: US (occurrence: US)
  Receive Date: 20221028
  Receipt Date: 20231206
  Transmission Date: 20240109
  Serious: Yes (Other)
  Sender: FDA-Public Use
  Company Number: US-ABBVIE-21K-163-3951923-00

PATIENT
  Sex: Male

DRUGS (6)
  1. IMBRUVICA [Suspect]
     Active Substance: IBRUTINIB
     Indication: Chronic lymphocytic leukaemia
     Dosage: STOPPED IN 2021?FORM STRENGTH: 420MG
     Route: 048
     Dates: start: 202102
  2. IMBRUVICA [Suspect]
     Active Substance: IBRUTINIB
     Indication: Chronic lymphocytic leukaemia
     Dosage: TIME INTERVAL: 0.33333333 DAYS: FORM STRENGTH: 420 MILLIGRAM
     Route: 048
     Dates: start: 20210224
  3. IMBRUVICA [Suspect]
     Active Substance: IBRUTINIB
     Indication: Chronic lymphocytic leukaemia
     Route: 048
  4. REVLIMID [Suspect]
     Active Substance: LENALIDOMIDE
     Indication: Product used for unknown indication
     Route: 048
  5. PFIZER-BIONTECH COVID-19 VACCINE [Concomitant]
     Active Substance: TOZINAMERAN
     Indication: COVID-19 immunisation
     Dosage: TIME INTERVAL: 1 TOTAL
     Route: 030
  6. HYDROXYUREA [Concomitant]
     Active Substance: HYDROXYUREA
     Indication: Product used for unknown indication

REACTIONS (18)
  - Adenocarcinoma [Unknown]
  - Prostate cancer [Unknown]
  - Cystic lung disease [Unknown]
  - Trismus [Recovering/Resolving]
  - Free prostate-specific antigen positive [Unknown]
  - Endodontic procedure [Recovering/Resolving]
  - Hair texture abnormal [Unknown]
  - Muscle spasms [Not Recovered/Not Resolved]
  - Onychoclasis [Unknown]
  - Haemorrhage [Unknown]
  - COVID-19 [Unknown]
  - Diarrhoea [Recovering/Resolving]
  - Contusion [Unknown]
  - Platelet disorder [Unknown]
  - Hyperviscosity syndrome [Unknown]
  - Ecchymosis [Unknown]
  - Proctitis [Unknown]
  - Lymphocyte count decreased [Unknown]

NARRATIVE: CASE EVENT DATE: 20210101
